FAERS Safety Report 4524881-6 (Version None)
Quarter: 2004Q4

REPORT INFORMATION
  Report Type: 
  Country: None (occurrence: None)
  Receive Date: 20041117
  Receipt Date: 20040123
  Transmission Date: 20050328
  Serious: Yes (Other)
  Sender: FDA-Public Use
  Company Number: 2004S1000257

PATIENT
  Age: 14 Year
  Sex: Female

DRUGS (10)
  1. CLOZAPINE [Suspect]
     Indication: IMPULSE-CONTROL DISORDER
     Dosage: 125MG QD, ORAL
     Route: 048
     Dates: start: 20040603, end: 20040122
  2. CLOZAPINE [Suspect]
     Indication: OPPOSITIONAL DEFIANT DISORDER
     Dosage: 125MG QD, ORAL
     Route: 048
     Dates: start: 20040603, end: 20040122
  3. CLOZAPINE [Suspect]
     Indication: IMPULSE-CONTROL DISORDER
     Dosage: 125MG QD, ORAL
     Route: 048
     Dates: start: 20040123
  4. CLOZAPINE [Suspect]
     Indication: OPPOSITIONAL DEFIANT DISORDER
     Dosage: 125MG QD, ORAL
     Route: 048
     Dates: start: 20040123
  5. AMPHETAMINE/DEXTROAMPHETAMINE SALTS [Concomitant]
  6. CARBAMAZEPINE [Concomitant]
  7. OXYBUTRIN XL [Concomitant]
  8. OXCARBAZEPINE [Concomitant]
  9. BENZTROPINE HYDROCHLORIDE [Concomitant]
  10. BUPROPION HYDROCHLORIDE [Concomitant]

REACTIONS (2)
  - NEUTROPENIA [None]
  - WHITE BLOOD CELL COUNT DECREASED [None]
